FAERS Safety Report 19396777 (Version 2)
Quarter: 2021Q3

REPORT INFORMATION
  Report Type: Spontaneous
  Country: JP (occurrence: JP)
  Receive Date: 20210609
  Receipt Date: 20210824
  Transmission Date: 20211014
  Serious: Yes (Hospitalization, Other)
  Sender: FDA-Public Use
  Company Number: JP-GLAXOSMITHKLINE-JP2021GSK121585

PATIENT
  Age: 88 Year
  Sex: Male

DRUGS (3)
  1. VALACICLOVIR [Suspect]
     Active Substance: VALACYCLOVIR HYDROCHLORIDE
     Indication: HERPES ZOSTER
     Dosage: 3000  MG, 1D
  2. PREGABALIN. [Concomitant]
     Active Substance: PREGABALIN
     Indication: ANALGESIC THERAPY
     Dosage: 75 MG, 1D
  3. MECOBALAMIN [Concomitant]
     Active Substance: METHYLCOBALAMIN
     Indication: ANALGESIC THERAPY
     Dosage: 1500 UG, QD

REACTIONS (11)
  - Hypophagia [Recovered/Resolved]
  - Acute kidney injury [Unknown]
  - Slow response to stimuli [Recovered/Resolved]
  - Toxic encephalopathy [Recovered/Resolved]
  - Pain [Recovered/Resolved]
  - Altered state of consciousness [Recovered/Resolved]
  - Irritability [Recovered/Resolved]
  - Angiopathy [Recovered/Resolved]
  - Memory impairment [Recovered/Resolved]
  - Urinary retention [Recovered/Resolved]
  - Dehydration [Recovered/Resolved]
